FAERS Safety Report 14654040 (Version 2)
Quarter: 2018Q1

REPORT INFORMATION
  Report Type: Spontaneous
  Country: SI (occurrence: SI)
  Receive Date: 20180319
  Receipt Date: 20180319
  Transmission Date: 20180509
  Serious: Yes (Death, Other)
  Sender: FDA-Public Use
  Company Number: PHHY2008SI047002

PATIENT

DRUGS (11)
  1. ZENAPAX [Suspect]
     Active Substance: DACLIZUMAB
     Indication: PROPHYLAXIS AGAINST TRANSPLANT REJECTION
     Dosage: 1 MG/KG, (BEFORE TRANSPLANTATION AND AT 2-WEEKLY INTERVALS FOR A TOTAL OF FIVE DOSES)
     Route: 042
  2. CELLCEPT [Suspect]
     Active Substance: MYCOPHENOLATE MOFETIL\MYCOPHENOLATE MOFETIL HYDROCHLORIDE
     Dosage: 0.75 G THREE TIMES DAILY (0.5 G THREE TIMES DAILY IN PATIENTS WITH BODY WEIGHT{ 50 KG) FROM DAY 1.
     Route: 065
  3. CICLOSPORIN [Suspect]
     Active Substance: CYCLOSPORINE
     Indication: IMMUNOSUPPRESSANT DRUG THERAPY
     Dosage: 0.08 MG/M2, UNK
     Route: 042
  4. METHYLPREDNISOLONE. [Suspect]
     Active Substance: METHYLPREDNISOLONE
     Indication: IMMUNOSUPPRESSANT DRUG THERAPY
     Dosage: FROM DAY 1-3
     Route: 042
  5. DILTIAZEM. [Concomitant]
     Active Substance: DILTIAZEM
     Indication: PRODUCT USED FOR UNKNOWN INDICATION
     Dosage: FROM DAY 0
     Route: 065
  6. CICLOSPORIN [Suspect]
     Active Substance: CYCLOSPORINE
     Indication: PROPHYLAXIS AGAINST TRANSPLANT REJECTION
     Dosage: 6 MG/KG, FROM DAY 2 (MICROEMULSION)
     Route: 042
  7. CELLCEPT [Suspect]
     Active Substance: MYCOPHENOLATE MOFETIL\MYCOPHENOLATE MOFETIL HYDROCHLORIDE
     Indication: IMMUNOSUPPRESSANT DRUG THERAPY
     Dosage: 3 OT, QD FROM DAY 1
     Route: 065
  8. SULFAMETHOXAZOLE/TRIMETHOPRIM ^DAK^ [Concomitant]
     Indication: PROPHYLAXIS
     Route: 065
  9. DILTIAZEM. [Concomitant]
     Active Substance: DILTIAZEM
     Dosage: 3 OT, (60 TO 90 MG FROM DAY 4)
     Route: 048
  10. METHYLPREDNISOLONE. [Suspect]
     Active Substance: METHYLPREDNISOLONE
     Indication: PROPHYLAXIS AGAINST TRANSPLANT REJECTION
     Dosage: FROM  DAY4
     Route: 042
  11. DILTIAZEM. [Concomitant]
     Active Substance: DILTIAZEM
     Dosage: 0.0022 MG/KG PER MINUTE
     Route: 042

REACTIONS (2)
  - Hypersensitivity [Unknown]
  - Aspergillus infection [Fatal]
